FAERS Safety Report 6783704-5 (Version None)
Quarter: 2010Q2

REPORT INFORMATION
  Report Type: 
  Country: None (occurrence: None)
  Receive Date: 20100622
  Receipt Date: 20100611
  Transmission Date: 20101027
  Serious: Yes (Hospitalization)
  Sender: FDA-Public Use
  Company Number: JP-ROCHE-710289

PATIENT
  Sex: Male
  Weight: 57 kg

DRUGS (6)
  1. AVASTIN [Suspect]
     Indication: RECTAL CANCER METASTATIC
     Route: 041
     Dates: start: 20091021, end: 20100317
  2. ELPLAT [Suspect]
     Indication: RECTAL CANCER METASTATIC
     Route: 041
     Dates: start: 20091021, end: 20100317
  3. LEUCOVORIN CALCIUM [Suspect]
     Indication: RECTAL CANCER METASTATIC
     Route: 041
     Dates: start: 20091021, end: 20100317
  4. FLUOROURACIL [Suspect]
     Indication: RECTAL CANCER METASTATIC
     Route: 041
     Dates: start: 20091021, end: 20100317
  5. GRANISETRON HYDROCHLORIDE [Concomitant]
     Route: 042
     Dates: start: 20090603, end: 20100317
  6. DEXART [Concomitant]
     Route: 042
     Dates: start: 20090603, end: 20100317

REACTIONS (3)
  - HYPOAESTHESIA [None]
  - LUNG DISORDER [None]
  - PYREXIA [None]
